FAERS Safety Report 4302011-3 (Version None)
Quarter: 2004Q1

REPORT INFORMATION
  Report Type: 
  Country: None (occurrence: None)
  Receive Date: 20040220
  Receipt Date: 20040209
  Transmission Date: 20041129
  Serious: Yes (Death, Other)
  Sender: FDA-Public Use
  Company Number: US-JNJFOC-20030906266

PATIENT
  Age: 68 Year
  Sex: Female

DRUGS (4)
  1. REMICADE [Suspect]
     Indication: RHEUMATOID ARTHRITIS
     Dosage: 200 MG, 1 IN 8 WEEK, INTRAVENOUS
     Route: 042
     Dates: start: 20030103, end: 20030725
  2. METHOTREXATE [Concomitant]
  3. IBUPROFEN [Concomitant]
  4. PLAQUENIL [Concomitant]

REACTIONS (6)
  - BRAIN OEDEMA [None]
  - CEREBRAL HAEMORRHAGE [None]
  - CERVICAL SPINAL STENOSIS [None]
  - HEMIPARESIS [None]
  - LUNG CANCER METASTATIC [None]
  - METASTASES TO CENTRAL NERVOUS SYSTEM [None]
